FAERS Safety Report 10546651 (Version 2)
Quarter: 2014Q4

REPORT INFORMATION
  Report Type: Report from Study
  Country: US (occurrence: US)
  Receive Date: 20141027
  Receipt Date: 20141027
  Transmission Date: 20150529
  Serious: No
  Sender: FDA-Public Use
  Company Number: US-ABBVIE-14P-163-1232209-00

PATIENT
  Age: 37 Year
  Sex: Female

DRUGS (5)
  1. NORETHINDRONE ACETATE. [Suspect]
     Active Substance: NORETHINDRONE ACETATE
     Indication: PRODUCT USED FOR UNKNOWN INDICATION
     Dates: start: 20140427, end: 201407
  2. MOTRIN [Suspect]
     Active Substance: IBUPROFEN
     Indication: PAIN
  3. LUPRON DEPOT [Suspect]
     Active Substance: LEUPROLIDE ACETATE
     Dates: start: 201404
  4. BIRTH CONTROL PILL [Concomitant]
     Indication: PRODUCT USED FOR UNKNOWN INDICATION
  5. LUPRON DEPOT [Suspect]
     Active Substance: LEUPROLIDE ACETATE
     Indication: ENDOMETRIOSIS
     Dates: start: 20140401, end: 201404

REACTIONS (24)
  - Breast pain [Recovered/Resolved]
  - Feeling abnormal [Unknown]
  - Pelvic pain [Recovered/Resolved]
  - Dizziness [Recovering/Resolving]
  - Menstrual disorder [Recovered/Resolved]
  - Menstrual disorder [Recovered/Resolved]
  - Vaginal haemorrhage [Recovered/Resolved]
  - Hot flush [Recovered/Resolved]
  - Mood altered [Recovered/Resolved]
  - Abdominal pain [Recovered/Resolved]
  - Pelvic pain [Not Recovered/Not Resolved]
  - Menorrhagia [Not Recovered/Not Resolved]
  - Nausea [Recovering/Resolving]
  - Menorrhagia [Recovered/Resolved]
  - Pelvic pain [Recovered/Resolved]
  - Depression [Not Recovered/Not Resolved]
  - Metrorrhagia [Recovered/Resolved]
  - Muscle spasms [Not Recovered/Not Resolved]
  - Drug ineffective [Unknown]
  - Dysmenorrhoea [Not Recovered/Not Resolved]
  - Menorrhagia [Recovered/Resolved]
  - Menorrhagia [Recovered/Resolved]
  - Migraine [Unknown]
  - Back pain [Not Recovered/Not Resolved]

NARRATIVE: CASE EVENT DATE: 201404
